FAERS Safety Report 17833591 (Version 1)
Quarter: 2020Q2

REPORT INFORMATION
  Report Type: Spontaneous
  Country: US (occurrence: US)
  Receive Date: 20200527
  Receipt Date: 20200527
  Transmission Date: 20200714
  Serious: No
  Sender: FDA-Public Use
  Company Number: None

PATIENT
  Age: 78 Year
  Sex: Male
  Weight: 88.9 kg

DRUGS (2)
  1. CARBOPLATIN (CARBOPLATIN 150MG/VIL INJ) [Suspect]
     Active Substance: CARBOPLATIN
     Indication: NEOPLASM MALIGNANT
     Dosage: ?          OTHER STRENGTH:150 MG/VIL;?
     Route: 042
     Dates: start: 20200505, end: 20200505
  2. CARBOPLATIN (CARBOPLATIN 150MG/VIL INJ) [Suspect]
     Active Substance: CARBOPLATIN
     Indication: BASAL CELL CARCINOMA

REACTIONS (3)
  - Erythema [None]
  - Pruritus [None]
  - Infusion related reaction [None]

NARRATIVE: CASE EVENT DATE: 20200505
